FAERS Safety Report 16986389 (Version 2)
Quarter: 2019Q4

REPORT INFORMATION
  Report Type: Spontaneous
  Country: PR (occurrence: PR)
  Receive Date: 20191101
  Receipt Date: 20191113
  Transmission Date: 20200122
  Serious: Yes (Death, Life-Threatening, Hospitalization)
  Sender: FDA-Public Use
  Company Number: PR-GE HEALTHCARE LIFE SCIENCES-2019CSU005498

PATIENT

DRUGS (8)
  1. ARICEPT [Concomitant]
     Active Substance: DONEPEZIL HYDROCHLORIDE
     Dosage: 10 MG, QD
     Route: 048
  2. DATSCAN [Suspect]
     Active Substance: IODINE\IOFLUPANE I-123
     Indication: SINGLE PHOTON EMISSION COMPUTERISED TOMOGRAM
     Dosage: 170.57 MBQ (4.61 MCI), ONCE
     Route: 042
     Dates: start: 20191022, end: 20191022
  3. DATSCAN [Suspect]
     Active Substance: IODINE\IOFLUPANE I-123
     Indication: PARKINSON^S DISEASE
  4. DATSCAN [Suspect]
     Active Substance: IODINE\IOFLUPANE I-123
     Indication: ESSENTIAL TREMOR
  5. PRIMIDONE. [Concomitant]
     Active Substance: PRIMIDONE
     Dosage: 50 MG, 1.5 TABS DAILY
     Route: 048
  6. PAXIL [Concomitant]
     Active Substance: PAROXETINE HYDROCHLORIDE
     Dosage: 25 MG, QD (AT PM)
     Route: 048
  7. KLONOPIN [Concomitant]
     Active Substance: CLONAZEPAM
     Dosage: 0.5 MG, BID (1 TAB AM, 1/2 TAB PM)
     Route: 048
  8. INDERAL [Concomitant]
     Active Substance: PROPRANOLOL HYDROCHLORIDE
     Dosage: 10 MG, BID
     Route: 048

REACTIONS (6)
  - Unresponsive to stimuli [Fatal]
  - Cardio-respiratory arrest [Recovered/Resolved]
  - Incontinence [Fatal]
  - Haemorrhagic stroke [Fatal]
  - Hypertension [Fatal]
  - Panic attack [Fatal]

NARRATIVE: CASE EVENT DATE: 20191022
